FAERS Safety Report 9200276 (Version 1)
Quarter: 2013Q1

REPORT INFORMATION
  Report Type: Spontaneous
  Country: CA (occurrence: CA)
  Receive Date: 20130329
  Receipt Date: 20130329
  Transmission Date: 20140127
  Serious: Yes (Hospitalization, Other)
  Sender: FDA-Public Use
  Company Number: CA-BAXTER-2013BAX010919

PATIENT
  Sex: Female

DRUGS (3)
  1. DIANEAL PD 101 SOLUTION WITH 0.5% DEXTROSE [Suspect]
     Indication: RENAL FAILURE
     Route: 033
  2. DIANEAL PD4 SOLUTION WITH 1.5% DEXTROSE AND 2.5 MEQ/L CALCIUM [Suspect]
     Indication: RENAL FAILURE
     Route: 033
  3. DIANEAL PD4 SOLUTION WITH 2.5% DEXTROSE AND 2.5 MEQ/L CALCIUM [Suspect]
     Indication: RENAL FAILURE
     Route: 033

REACTIONS (6)
  - Myocardial infarction [Recovering/Resolving]
  - Pneumonia [Recovering/Resolving]
  - Arterial occlusive disease [Recovering/Resolving]
  - Peripheral artery thrombosis [Recovering/Resolving]
  - Infection [Recovering/Resolving]
  - Hypotension [Recovering/Resolving]
